FAERS Safety Report 23485589 (Version 3)
Quarter: 2024Q2

REPORT INFORMATION
  Report Type: Spontaneous
  Country: US (occurrence: US)
  Receive Date: 20240206
  Receipt Date: 20240523
  Transmission Date: 20240716
  Serious: Yes (Disabling)
  Sender: FDA-Public Use
  Company Number: US-SA-SAC20240131000521

PATIENT
  Sex: Female

DRUGS (35)
  1. DUPIXENT [Suspect]
     Active Substance: DUPILUMAB
     Indication: Asthma
     Dosage: 300 MG, QOW
     Route: 058
  2. ALBUTEROL SULFATE [Concomitant]
     Active Substance: ALBUTEROL SULFATE
     Dosage: ALBUTEROL SU AER 108 (90
  3. ALBUTEROL SULFATE [Concomitant]
     Active Substance: ALBUTEROL SULFATE
  4. AMLODIPINE BESYLATE [Concomitant]
     Active Substance: AMLODIPINE BESYLATE
  5. CITALOPRAM HYDROBROMIDE [Concomitant]
     Active Substance: CITALOPRAM HYDROBROMIDE
  6. FAMOTIDINE [Concomitant]
     Active Substance: FAMOTIDINE
  7. FAMOTIDINE [Concomitant]
     Active Substance: FAMOTIDINE
  8. FUROSEMIDE [Concomitant]
     Active Substance: FUROSEMIDE
  9. FUROSEMIDE [Concomitant]
     Active Substance: FUROSEMIDE
  10. GABAPENTIN [Concomitant]
     Active Substance: GABAPENTIN
  11. GABAPENTIN [Concomitant]
     Active Substance: GABAPENTIN
  12. JARDIANCE [Concomitant]
     Active Substance: EMPAGLIFLOZIN
  13. JARDIANCE [Concomitant]
     Active Substance: EMPAGLIFLOZIN
  14. LISINOPRIL [Concomitant]
     Active Substance: LISINOPRIL
  15. LISINOPRIL [Concomitant]
     Active Substance: LISINOPRIL
  16. METFORMIN HYDROCHLORIDE [Concomitant]
     Active Substance: METFORMIN HYDROCHLORIDE
  17. METOPROLOL SUCCINATE [Concomitant]
     Active Substance: METOPROLOL SUCCINATE
     Dosage: METOPROLOL S TB2 50MG
  18. MOUNJARO [Concomitant]
     Active Substance: TIRZEPATIDE
     Dosage: MOUNJARO SOP 7.5MG/0.5ML
  19. MOUNJARO [Concomitant]
     Active Substance: TIRZEPATIDE
  20. REXULTI [Concomitant]
     Active Substance: BREXPIPRAZOLE
  21. REXULTI [Concomitant]
     Active Substance: BREXPIPRAZOLE
  22. ROPINIROLE [Concomitant]
     Active Substance: ROPINIROLE
  23. ROPINIROLE [Concomitant]
     Active Substance: ROPINIROLE
  24. ROSUVASTATIN [Concomitant]
     Active Substance: ROSUVASTATIN
  25. ROSUVASTATIN [Concomitant]
     Active Substance: ROSUVASTATIN
  26. TRELEGY ELLIPTA [Concomitant]
     Active Substance: FLUTICASONE FUROATE\UMECLIDINIUM BROMIDE\VILANTEROL TRIFENATATE
     Dosage: TRELEGY ELLI AEP 200-62.5
  27. TRELEGY ELLIPTA [Concomitant]
     Active Substance: FLUTICASONE FUROATE\UMECLIDINIUM BROMIDE\VILANTEROL TRIFENATATE
  28. VITAMIN D2 [Concomitant]
     Active Substance: ERGOCALCIFEROL
  29. VITAMIN D2 [Concomitant]
     Active Substance: ERGOCALCIFEROL
  30. DEXLANSOPRAZOLE [Concomitant]
     Active Substance: DEXLANSOPRAZOLE
  31. DEXLANSOPRAZOLE [Concomitant]
     Active Substance: DEXLANSOPRAZOLE
  32. MEDROXYPROGEST [Concomitant]
  33. MEDROXYPROGEST [Concomitant]
  34. SPIRONOLACTONE [Concomitant]
     Active Substance: SPIRONOLACTONE
     Dosage: UNK
  35. SPIRONOLACTONE [Concomitant]
     Active Substance: SPIRONOLACTONE

REACTIONS (4)
  - Loss of personal independence in daily activities [Not Recovered/Not Resolved]
  - Dyspnoea [Not Recovered/Not Resolved]
  - Chest pain [Not Recovered/Not Resolved]
  - Injection site pain [Not Recovered/Not Resolved]
